FAERS Safety Report 5521949-2 (Version None)
Quarter: 2007Q4

REPORT INFORMATION
  Report Type: 
  Country: None (occurrence: None)
  Receive Date: 20071120
  Receipt Date: 20070417
  Transmission Date: 20080405
  Serious: No
  Sender: FDA-Public Use
  Company Number: US-BRISTOL-MYERS SQUIBB COMPANY-13750252

PATIENT
  Age: 80 Year
  Sex: Female
  Weight: 68 kg

DRUGS (8)
  1. AVALIDE [Suspect]
     Indication: HYPERTENSION
     Dosage: 1/2 TABLET/DAY IN 2004; FEB 2005 DOSE INCREASED TO 1 TABLET/DAY
     Dates: start: 20040101
  2. PLAVIX [Concomitant]
  3. CRESTOR [Concomitant]
  4. ZETIA [Concomitant]
  5. POTASSIUM CHLORIDE [Concomitant]
  6. PRILOSEC [Concomitant]
  7. DONNATAL [Concomitant]
  8. VITAMINS [Concomitant]

REACTIONS (2)
  - BREAST ENLARGEMENT [None]
  - WEIGHT INCREASED [None]
